FAERS Safety Report 8998468 (Version 1)
Quarter: 2013Q1

REPORT INFORMATION
  Report Type: Spontaneous
  Country: US (occurrence: US)
  Receive Date: 20130103
  Receipt Date: 20130103
  Transmission Date: 20140127
  Serious: Yes (Other)
  Sender: FDA-Public Use
  Company Number: US-ROCHE-1174358

PATIENT
  Age: 62 Year
  Sex: Female

DRUGS (3)
  1. VALGANCICLOVIR [Suspect]
     Indication: ANTIVIRAL PROPHYLAXIS
     Dosage: DOSE-ADJUSTED FOR A GFR 55 ML/MIN
     Route: 065
  2. GANCICLOVIR [Suspect]
     Indication: CYTOMEGALOVIRUS INFECTION
     Route: 042
  3. FOSCARNET [Concomitant]

REACTIONS (1)
  - Drug resistance [Unknown]
